FAERS Safety Report 6206985-5 (Version None)
Quarter: 2009Q2

REPORT INFORMATION
  Report Type: 
  Country: None (occurrence: None)
  Receive Date: 20090528
  Receipt Date: 20090519
  Transmission Date: 20091009
  Serious: Yes (Death, Hospitalization)
  Sender: FDA-Public Use
  Company Number: DE-ROCHE-604457

PATIENT
  Sex: Male
  Weight: 93 kg

DRUGS (2)
  1. PEGASYS [Suspect]
     Route: 058
     Dates: start: 20080205, end: 20081216
  2. COPEGUS [Suspect]
     Route: 048
     Dates: start: 20080205, end: 20081216

REACTIONS (5)
  - ANAEMIA [None]
  - LEUKOPENIA [None]
  - PNEUMOCOCCAL SEPSIS [None]
  - PNEUMONIA [None]
  - THROMBOCYTOPENIA [None]
